FAERS Safety Report 7208873-4 (Version None)
Quarter: 2011Q1

REPORT INFORMATION
  Report Type: 
  Country: None (occurrence: None)
  Receive Date: 20110104
  Receipt Date: 20101224
  Transmission Date: 20110831
  Serious: Yes (Hospitalization, Other)
  Sender: FDA-Public Use
  Company Number: JP-JNJFOC-20101208715

PATIENT
  Age: 50 Year
  Sex: Male

DRUGS (3)
  1. HALOPERIDOL DECANOATE [Suspect]
     Indication: ILL-DEFINED DISORDER
     Route: 030
  2. RISPERDAL [Suspect]
     Indication: ILL-DEFINED DISORDER
     Route: 048
  3. FLUVOXAMINE MALEATE [Concomitant]
     Route: 048

REACTIONS (1)
  - NEUROLOGICAL SYMPTOM [None]
